FAERS Safety Report 5723712-6 (Version None)
Quarter: 2008Q2

REPORT INFORMATION
  Report Type: 
  Country: None (occurrence: None)
  Receive Date: 20080430
  Receipt Date: 20080422
  Transmission Date: 20081010
  Serious: Yes (Hospitalization, Other)
  Sender: FDA-Public Use
  Company Number: GB-ASTRAZENECA-2008AC01025

PATIENT
  Age: 72 Year
  Sex: Male

DRUGS (4)
  1. OMEPRAZOLE [Suspect]
     Route: 065
  2. PHENYTOIN [Interacting]
  3. PERINDOPRIL ERBUMINE [Concomitant]
  4. INDAPAMIDE [Concomitant]

REACTIONS (6)
  - BALANCE DISORDER [None]
  - COORDINATION ABNORMAL [None]
  - DRUG INTERACTION [None]
  - FALL [None]
  - NERVOUS SYSTEM DISORDER [None]
  - TREMOR [None]
